FAERS Safety Report 25903526 (Version 1)
Quarter: 2025Q4

REPORT INFORMATION
  Report Type: Spontaneous
  Country: EU (occurrence: EU)
  Receive Date: 20251009
  Receipt Date: 20251009
  Transmission Date: 20260117
  Serious: Yes (Other)
  Sender: TEVA
  Company Number: None

PATIENT
  Age: 82 Year
  Sex: Male
  Weight: 85 kg

DRUGS (2)
  1. COTRIM [Suspect]
     Active Substance: SULFAMETHOXAZOLE\TRIMETHOPRIM
     Indication: Diabetic foot
     Dosage: COTRIM 960
     Route: 048
     Dates: start: 20250715, end: 20250901
  2. RIFAMPIN [Suspect]
     Active Substance: RIFAMPIN
     Indication: Diabetic foot
     Dosage: RIFAMPICIN 300
     Route: 048
     Dates: start: 20250715, end: 20250901

REACTIONS (1)
  - Polyarthritis [Not Recovered/Not Resolved]

NARRATIVE: CASE EVENT DATE: 20250801
